FAERS Safety Report 24422848 (Version 1)
Quarter: 2024Q4

REPORT INFORMATION
  Report Type: Spontaneous
  Country: GR (occurrence: GR)
  Receive Date: 20241010
  Receipt Date: 20241010
  Transmission Date: 20250115
  Serious: Yes (Death)
  Sender: PFIZER
  Company Number: GR-PFIZER INC-PV202400131124

PATIENT
  Age: 60 Year
  Sex: Male

DRUGS (1)
  1. LORLATINIB [Suspect]
     Active Substance: LORLATINIB
     Indication: Non-small cell lung cancer metastatic
     Dosage: 100 MG, 1X/DAY
     Route: 048

REACTIONS (2)
  - Pulmonary embolism [Fatal]
  - Respiratory tract infection [Unknown]
